FAERS Safety Report 4662620-9 (Version None)
Quarter: 2005Q2

REPORT INFORMATION
  Report Type: 
  Country: None (occurrence: None)
  Receive Date: 20050516
  Receipt Date: 20050401
  Transmission Date: 20051028
  Serious: Yes (Life-Threatening, Hospitalization, Disabling, Other)
  Sender: FDA-Public Use
  Company Number: 2005AP01980

PATIENT
  Age: 63 Year
  Sex: Male
  Weight: 107 kg

DRUGS (10)
  1. NEXIUM HP7 [Suspect]
     Indication: HELICOBACTER INFECTION
     Route: 048
     Dates: start: 20041218
  2. AMOXIL [Suspect]
     Route: 048
     Dates: start: 20041218
  3. KLACID [Suspect]
     Route: 048
     Dates: start: 20041218
  4. METFORMIN HCL [Concomitant]
     Indication: DIABETES MELLITUS NON-INSULIN-DEPENDENT
     Route: 048
     Dates: start: 19960101, end: 20050101
  5. ZOCOR [Concomitant]
     Indication: HYPERCHOLESTEROLAEMIA
     Route: 048
     Dates: start: 19940101
  6. BETALOC [Concomitant]
     Indication: HYPERTENSION
     Route: 048
     Dates: start: 19910101
  7. IMDUR [Concomitant]
     Indication: ANGINA PECTORIS
     Route: 048
     Dates: start: 20010101
  8. ALDACTONE [Concomitant]
     Indication: CARDIAC FAILURE
     Route: 048
     Dates: start: 20010101
  9. LANOXIN [Concomitant]
     Indication: CARDIAC FAILURE
     Route: 048
     Dates: start: 20010101
  10. FRUSEMIDE [Concomitant]
     Indication: CARDIAC FAILURE
     Route: 048
     Dates: start: 20010101

REACTIONS (3)
  - ACUTE PULMONARY OEDEMA [None]
  - DIALYSIS [None]
  - RENAL FAILURE ACUTE [None]
